FAERS Safety Report 4342862-2 (Version None)
Quarter: 2004Q2

REPORT INFORMATION
  Report Type: 
  Country: None (occurrence: None)
  Receive Date: 20040420
  Receipt Date: 20040420
  Transmission Date: 20050107
  Serious: Yes (Other)
  Sender: FDA-Public Use
  Company Number: None

PATIENT
  Sex: Male

DRUGS (2)
  1. GUANFACINE HCL [Suspect]
     Indication: PERVASIVE DEVELOPMENTAL DISORDER
     Dosage: 3 MG AM NOON + 1 MG PM PO
     Route: 048
     Dates: start: 20011016
  2. RISPERDAL [Concomitant]

REACTIONS (3)
  - CONDITION AGGRAVATED [None]
  - DISTURBANCE IN SOCIAL BEHAVIOUR [None]
  - PHARMACEUTICAL PRODUCT COMPLAINT [None]
